FAERS Safety Report 8255504-0 (Version None)
Quarter: 2012Q2

REPORT INFORMATION
  Report Type: 
  Country: None (occurrence: None)
  Receive Date: 20120403
  Receipt Date: 20120325
  Transmission Date: 20120825
  Serious: Yes (Other)
  Sender: FDA-Public Use
  Company Number: US-BAYER-2012-031726

PATIENT

DRUGS (2)
  1. ASPIRIN [Suspect]
  2. XARELTO [Interacting]
     Indication: ATRIAL FIBRILLATION
     Dosage: 15 MG, HS
     Route: 048

REACTIONS (1)
  - HAEMORRHAGE [None]
